FAERS Safety Report 6239697-2 (Version None)
Quarter: 2009Q2

REPORT INFORMATION
  Report Type: 
  Country: None (occurrence: None)
  Receive Date: 20090619
  Receipt Date: 20090420
  Transmission Date: 20091009
  Serious: Yes (Other)
  Sender: FDA-Public Use
  Company Number: 8047673

PATIENT

DRUGS (2)
  1. PREDNISOLONE [Suspect]
     Indication: AUTOIMMUNE HEPATITIS
  2. PREDNISOLONE [Suspect]
     Indication: AUTOIMMUNE HEPATITIS

REACTIONS (2)
  - ALANINE AMINOTRANSFERASE INCREASED [None]
  - HEPATIC NEOPLASM MALIGNANT [None]
